FAERS Safety Report 6269608-5 (Version None)
Quarter: 2009Q3

REPORT INFORMATION
  Report Type: 
  Country: None (occurrence: None)
  Receive Date: 20090714
  Receipt Date: 20090701
  Transmission Date: 20100115
  Serious: Yes (Other)
  Sender: FDA-Public Use
  Company Number: 1-19029145

PATIENT
  Age: 26 Year
  Sex: Male

DRUGS (4)
  1. ONDANSETRON [Suspect]
     Indication: PROCEDURAL NAUSEA
     Dosage: 4 MG, ONCE, INTRAVENOUS
     Route: 042
  2. PROPOFOL [Suspect]
     Indication: ANAESTHESIA
     Dosage: INTRAVENOUS
     Route: 042
  3. DESFLURANE [Concomitant]
  4. BUPIVACAINE [Concomitant]

REACTIONS (3)
  - EXTRAPYRAMIDAL DISORDER [None]
  - LARYNGOSPASM [None]
  - OROPHARYNGEAL SPASM [None]
